FAERS Safety Report 11090146 (Version 1)
Quarter: 2015Q2

REPORT INFORMATION
  Report Type: Spontaneous
  Country: IT (occurrence: None)
  Receive Date: 20150501
  Receipt Date: 20150501
  Transmission Date: 20150821
  Serious: Yes (Hospitalization)
  Sender: FDA-Public Use
  Company Number: DEP_02719_2015

PATIENT
  Age: 86 Year
  Sex: Female

DRUGS (7)
  1. DIAMICRON [Concomitant]
     Active Substance: GLICLAZIDE
  2. CARDIOASPIRIN [Concomitant]
     Active Substance: ASPIRIN
  3. PANTORC [Concomitant]
     Active Substance: PANTOPRAZOLE SODIUM
  4. PALEXIA [Suspect]
     Active Substance: TAPENTADOL HYDROCHLORIDE
     Indication: DIABETIC NEUROPATHY
     Route: 048
     Dates: start: 20130101, end: 20141108
  5. FUROSEMIDE. [Concomitant]
     Active Substance: FUROSEMIDE
  6. LYRICA [Suspect]
     Active Substance: PREGABALIN
     Indication: DIABETIC NEUROPATHY
     Dates: start: 20130101, end: 20141108
  7. KANRENOL [Concomitant]
     Active Substance: CANRENOATE POTASSIUM

REACTIONS (4)
  - Blood creatinine increased [None]
  - Paraesthesia [None]
  - Blood urea increased [None]
  - Dyskinesia [None]

NARRATIVE: CASE EVENT DATE: 20141108
